FAERS Safety Report 4873172-2 (Version None)
Quarter: 2006Q1

REPORT INFORMATION
  Report Type: 
  Country: None (occurrence: None)
  Receive Date: 20060104
  Receipt Date: 20060104
  Transmission Date: 20060701
  Serious: Yes (Hospitalization, Other)
  Sender: FDA-Public Use
  Company Number: None

PATIENT
  Age: 63 Month
  Sex: Female
  Weight: 86.1834 kg

DRUGS (1)
  1. REGRANEX [Suspect]
     Indication: ULCER
     Dosage: 1 DROP
     Dates: start: 20040222, end: 20040222

REACTIONS (4)
  - SKIN BURNING SENSATION [None]
  - STAPHYLOCOCCAL INFECTION [None]
  - TOE AMPUTATION [None]
  - WOUND HAEMORRHAGE [None]
